FAERS Safety Report 4282918-6 (Version None)
Quarter: 2004Q1

REPORT INFORMATION
  Report Type: 
  Country: None (occurrence: None)
  Receive Date: 20040130
  Receipt Date: 20031118
  Transmission Date: 20041129
  Serious: No
  Sender: FDA-Public Use
  Company Number: US-BRISTOL-MYERS SQUIBB COMPANY-12438669

PATIENT
  Age: 57 Year
  Sex: Male
  Weight: 128 kg

DRUGS (4)
  1. SERZONE [Suspect]
     Indication: DEPRESSION
     Dosage: STARTED AT 150 MG AND INCREASED TO 300 MG AND FINALLY TO 600 MG ONCE DAILY SINCE 2000
     Route: 048
     Dates: start: 19990501, end: 20030601
  2. ZYPREXA [Concomitant]
  3. XANAX [Concomitant]
  4. DARVOCET [Concomitant]

REACTIONS (3)
  - CONSTIPATION [None]
  - MEMORY IMPAIRMENT [None]
  - SOMNOLENCE [None]
